FAERS Safety Report 13844941 (Version 1)
Quarter: 2017Q3

REPORT INFORMATION
  Report Type: Spontaneous
  Country: FR (occurrence: FR)
  Receive Date: 20170808
  Receipt Date: 20170808
  Transmission Date: 20171127
  Serious: Yes (Death, Congenital Anomaly)
  Sender: FDA-Public Use
  Company Number: FR-SA-2017SA142006

PATIENT
  Sex: Male

DRUGS (4)
  1. TAHOR [Suspect]
     Active Substance: ATORVASTATIN CALCIUM
     Route: 064
  2. LEXOMIL [Suspect]
     Active Substance: BROMAZEPAM
     Route: 064
  3. IKOREL [Suspect]
     Active Substance: NICORANDIL
     Route: 064
  4. PLAVIX [Suspect]
     Active Substance: CLOPIDOGREL BISULFATE
     Route: 064

REACTIONS (3)
  - Microcephaly [Fatal]
  - Foetal growth restriction [Fatal]
  - Foetal exposure during pregnancy [Fatal]

NARRATIVE: CASE EVENT DATE: 20140325
